FAERS Safety Report 4396588-X (Version None)
Quarter: 2004Q3

REPORT INFORMATION
  Report Type: 
  Country: None (occurrence: None)
  Receive Date: 20040712
  Receipt Date: 20040629
  Transmission Date: 20050211
  Serious: Yes (Other)
  Sender: FDA-Public Use
  Company Number: 2004036120

PATIENT
  Age: 52 Year
  Sex: Male

DRUGS (6)
  1. LIPITOR [Suspect]
     Indication: HYPERLIPIDAEMIA
     Dosage: 10 MG (5 MG, 2 IN 1 D), ORAL
     Route: 048
     Dates: start: 20030729, end: 20040512
  2. GLIMEPIRIDE [Concomitant]
  3. BERAPROST SODIUM (BERAPROST SODIUM) [Concomitant]
  4. MECOBALAMIN (MECOBALAMIN) [Concomitant]
  5. AMANTADINE HCL [Concomitant]
  6. ACETYLSALICYLIC ACID SRT [Concomitant]

REACTIONS (1)
  - RHABDOMYOLYSIS [None]
